FAERS Safety Report 5778598-0 (Version None)
Quarter: 2008Q2

REPORT INFORMATION
  Report Type: 
  Country: None (occurrence: None)
  Receive Date: 20080619
  Receipt Date: 20080612
  Transmission Date: 20081010
  Serious: Yes (Congenital Anomaly)
  Sender: FDA-Public Use
  Company Number: DK-ASTRAZENECA-2008SE01423

PATIENT
  Sex: Female

DRUGS (6)
  1. SEROQUEL [Suspect]
     Indication: DEPRESSION
     Route: 064
     Dates: start: 20040101, end: 20070710
  2. SELOZOK [Suspect]
     Indication: ARRHYTHMIA
     Route: 064
     Dates: start: 20071023
  3. ZOLOFT [Suspect]
     Indication: DEPRESSION
     Route: 064
     Dates: start: 20070710, end: 20080205
  4. EFFEXOR [Suspect]
     Indication: DEPRESSION
     Route: 064
     Dates: start: 20040101, end: 20070710
  5. LAMICTAL [Suspect]
     Indication: DEPRESSION
     Route: 064
     Dates: start: 20040101, end: 20070710
  6. EYE-Q [Suspect]

REACTIONS (1)
  - CEREBRAL VENTRICLE DILATATION [None]
